FAERS Safety Report 20185337 (Version 1)
Quarter: 2021Q4

REPORT INFORMATION
  Report Type: Spontaneous
  Country: ES (occurrence: ES)
  Receive Date: 20211215
  Receipt Date: 20211215
  Transmission Date: 20220303
  Serious: Yes (Other)
  Sender: FDA-Public Use
  Company Number: None

PATIENT
  Age: 49 Year
  Sex: Male

DRUGS (1)
  1. TECFIDERA [Suspect]
     Active Substance: DIMETHYL FUMARATE
     Indication: Relapsing-remitting multiple sclerosis
     Dosage: 240 MG AL D?A
     Route: 048
     Dates: start: 20211001, end: 20211118

REACTIONS (3)
  - Eosinophilia [Not Recovered/Not Resolved]
  - Epigastric discomfort [Not Recovered/Not Resolved]
  - Hypertransaminasaemia [Not Recovered/Not Resolved]

NARRATIVE: CASE EVENT DATE: 20211021
